FAERS Safety Report 5207716-8 (Version None)
Quarter: 2006Q4

REPORT INFORMATION
  Report Type: 
  Country: None (occurrence: None)
  Receive Date: 20061030
  Receipt Date: 20060822
  Transmission Date: 20070319
  Serious: No
  Sender: FDA-Public Use
  Company Number: 2006CT000701

PATIENT
  Age: 50 Year
  Sex: Male
  Weight: 48.0813 kg

DRUGS (6)
  1. VENTAVIS [Suspect]
     Indication: PULMONARY HYPERTENSION
     Dosage: 5 UG; 6TO9X/DAY; 2.5 UG;6XD;INH
     Route: 055
     Dates: start: 20060808, end: 20060822
  2. VENTAVIS [Suspect]
     Indication: PULMONARY HYPERTENSION
     Dosage: 5 UG; 6TO9X/DAY; 2.5 UG;6XD;INH
     Route: 055
     Dates: start: 20060822
  3. MORPHINE SULFATE [Concomitant]
  4. ALDACTONE [Concomitant]
  5. LASIX [Concomitant]
  6. LACTULOSE [Concomitant]

REACTIONS (3)
  - EXOPHTHALMOS [None]
  - HEADACHE [None]
  - HYPOTENSION [None]
